FAERS Safety Report 6054111-8 (Version None)
Quarter: 2009Q1

REPORT INFORMATION
  Report Type: 
  Country: None (occurrence: None)
  Receive Date: 20090123
  Receipt Date: 20090123
  Transmission Date: 20090719
  Serious: No
  Sender: FDA-Public Use
  Company Number: None

PATIENT
  Sex: Male

DRUGS (2)
  1. LOPRESSOR [Suspect]
     Indication: CORONARY ARTERY DISEASE
     Dates: start: 20090108, end: 20090121
  2. LOPRESSOR [Suspect]
     Indication: HYPERTENSION
     Dates: start: 20090108, end: 20090121

REACTIONS (3)
  - DYSPNOEA [None]
  - PALPITATIONS [None]
  - PRODUCT QUALITY ISSUE [None]
